FAERS Safety Report 4788509-2 (Version None)
Quarter: 2005Q4

REPORT INFORMATION
  Report Type: 
  Country: None (occurrence: None)
  Receive Date: 20051005
  Receipt Date: 20051005
  Transmission Date: 20060501
  Serious: No
  Sender: FDA-Public Use
  Company Number: None

PATIENT
  Age: 63 Year
  Sex: Male

DRUGS (9)
  1. HEPARIN [Suspect]
     Indication: CORONARY ARTERY DISEASE
     Dosage: 900-1000 U/HR
     Dates: start: 20050209, end: 20050214
  2. HEPARIN [Suspect]
     Indication: CORONARY ARTERY SURGERY
     Dosage: 900-1000 U/HR
     Dates: start: 20050209, end: 20050214
  3. AMIODARONE [Concomitant]
  4. LIDOCAINE [Concomitant]
  5. FENTANYL [Concomitant]
  6. COLACE [Concomitant]
  7. FAMOTIDINE [Concomitant]
  8. METOPROLOL [Concomitant]
  9. ASPIRIN [Concomitant]

REACTIONS (1)
  - HEPARIN-INDUCED THROMBOCYTOPENIA [None]
